FAERS Safety Report 9047584 (Version 2)
Quarter: 2014Q2

REPORT INFORMATION
  Report Type: Spontaneous
  Country: US (occurrence: US)
  Receive Date: 20130204
  Receipt Date: 20140611
  Transmission Date: 20141212
  Serious: Yes (Other)
  Sender: FDA-Public Use
  Company Number: US-AMGEN-USASP2013004517

PATIENT
  Age: 96 Year
  Sex: Female

DRUGS (2)
  1. ENBREL [Suspect]
     Indication: RHEUMATOID ARTHRITIS
     Dosage: 50 MG, QWK
     Route: 065
     Dates: start: 2003
  2. ENBREL [Suspect]
     Dosage: UNK
     Route: 065

REACTIONS (9)
  - Rheumatoid arthritis [Not Recovered/Not Resolved]
  - Infected bites [Recovered/Resolved]
  - Wound [Not Recovered/Not Resolved]
  - Wound drainage [Not Recovered/Not Resolved]
  - Blister [Not Recovered/Not Resolved]
  - Abdominal discomfort [Not Recovered/Not Resolved]
  - Asthenia [Not Recovered/Not Resolved]
  - Joint swelling [Not Recovered/Not Resolved]
  - General physical health deterioration [Not Recovered/Not Resolved]
